FAERS Safety Report 13349646 (Version 2)
Quarter: 2017Q2

REPORT INFORMATION
  Report Type: Report from Study
  Country: PT (occurrence: PT)
  Receive Date: 20170320
  Receipt Date: 20170426
  Transmission Date: 20170830
  Serious: Yes (Other)
  Sender: FDA-Public Use
  Company Number: PT-ROCHE-1885437

PATIENT
  Age: 39 Year
  Sex: Male
  Weight: 117 kg

DRUGS (2)
  1. ZELBORAF [Suspect]
     Active Substance: VEMURAFENIB
     Indication: METASTATIC MALIGNANT MELANOMA
     Route: 048
     Dates: start: 20160831, end: 20170118
  2. COBIMETINIB [Suspect]
     Active Substance: COBIMETINIB
     Indication: METASTATIC MALIGNANT MELANOMA
     Route: 048
     Dates: start: 20160928, end: 20170111

REACTIONS (7)
  - Drug ineffective [Unknown]
  - Arthralgia [Recovered/Resolved]
  - Panniculitis [Recovering/Resolving]
  - Folliculitis [Recovering/Resolving]
  - Papilloma [Recovered/Resolved]
  - Uveitis [Not Recovered/Not Resolved]
  - Disease progression [Unknown]

NARRATIVE: CASE EVENT DATE: 20160913
